FAERS Safety Report 7450981-7 (Version None)
Quarter: 2011Q2

REPORT INFORMATION
  Report Type: 
  Country: None (occurrence: None)
  Receive Date: 20110502
  Receipt Date: 20110422
  Transmission Date: 20111010
  Serious: Yes (Death, Hospitalization, Other)
  Sender: FDA-Public Use
  Company Number: JP-ROCHE-764665

PATIENT
  Sex: Male
  Weight: 46 kg

DRUGS (4)
  1. NAVELBINE [Concomitant]
     Route: 042
     Dates: start: 20100209, end: 20100818
  2. AVASTIN [Suspect]
     Indication: LUNG ADENOCARCINOMA RECURRENT
     Dosage: EVERY 3 TO 4 WEEKS
     Route: 041
     Dates: start: 20100602, end: 20110209
  3. CISPLATIN [Concomitant]
     Route: 041
     Dates: start: 20100209, end: 20100818
  4. TAXOTERE [Concomitant]
     Dosage: DRUG: TAXOTERE(DOCETAXEL HYDRATE), DOSAGE IS UNCERTAIN
     Route: 041
     Dates: start: 20110209, end: 20110209

REACTIONS (9)
  - OESOPHAGOBRONCHIAL FISTULA [None]
  - CARDIO-RESPIRATORY ARREST [None]
  - HAEMATEMESIS [None]
  - PYREXIA [None]
  - OESOPHAGEAL ULCER HAEMORRHAGE [None]
  - OESOPHAGEAL ULCER PERFORATION [None]
  - DYSPHAGIA [None]
  - METASTASES TO ADRENALS [None]
  - OESOPHAGEAL STENOSIS [None]
